FAERS Safety Report 24807602 (Version 2)
Quarter: 2025Q1

REPORT INFORMATION
  Report Type: Report from Study
  Country: US (occurrence: US)
  Receive Date: 20250105
  Receipt Date: 20250113
  Transmission Date: 20250408
  Serious: Yes (Other)
  Sender: JOHNSON AND JOHNSON
  Company Number: US-JNJFOC-20241278186

PATIENT
  Age: 35 Year
  Sex: Female

DRUGS (4)
  1. SPRAVATO [Suspect]
     Active Substance: ESKETAMINE
     Indication: Depression
     Route: 045
     Dates: start: 20241121, end: 20241121
  2. SPRAVATO [Suspect]
     Active Substance: ESKETAMINE
     Route: 045
     Dates: start: 20241125, end: 20241212
  3. SPRAVATO [Suspect]
     Active Substance: ESKETAMINE
     Route: 045
     Dates: start: 20241216, end: 20241223
  4. SPRAVATO [Suspect]
     Active Substance: ESKETAMINE
     Route: 045
     Dates: start: 20241016, end: 20241114

REACTIONS (5)
  - Seizure [Unknown]
  - Head injury [Unknown]
  - Illness [Unknown]
  - Therapeutic response decreased [Unknown]
  - Depression [Unknown]

NARRATIVE: CASE EVENT DATE: 20240101
